FAERS Safety Report 13974880 (Version 3)
Quarter: 2017Q3

REPORT INFORMATION
  Report Type: Report from Study
  Country: None (occurrence: SE)
  Receive Date: 20170915
  Receipt Date: 20170921
  Transmission Date: 20171128
  Serious: Yes (Hospitalization)
  Sender: FDA-Public Use
  Company Number: SE-ABBVIE-17K-150-1969813-00

PATIENT
  Sex: Male

DRUGS (4)
  1. DUODOPA [Suspect]
     Active Substance: CARBIDOPA\LEVODOPA
     Route: 050
     Dates: start: 20161202, end: 20170522
  2. DUODOPA [Suspect]
     Active Substance: CARBIDOPA\LEVODOPA
     Indication: PARKINSON^S DISEASE
     Route: 050
     Dates: start: 20161017, end: 20161202
  3. DUODOPA [Suspect]
     Active Substance: CARBIDOPA\LEVODOPA
     Dosage: INCREASED MORNING AND CONTINUOUS DOSE, TREATMENT TIME 06.00 AM TO MIDNIGHT
     Route: 050
     Dates: start: 20170522, end: 2017
  4. DUODOPA [Suspect]
     Active Substance: CARBIDOPA\LEVODOPA
     Dosage: SLOW UP-TITRATION OF CD.
     Route: 050
     Dates: start: 20170919

REACTIONS (3)
  - Hallucination [Not Recovered/Not Resolved]
  - Device dislocation [Recovered/Resolved]
  - Drug effect incomplete [Not Recovered/Not Resolved]
